FAERS Safety Report 7767437-4 (Version None)
Quarter: 2011Q3

REPORT INFORMATION
  Report Type: 
  Country: None (occurrence: None)
  Receive Date: 20110922
  Receipt Date: 20110131
  Transmission Date: 20111222
  Serious: No
  Sender: FDA-Public Use
  Company Number: US-ASTRAZENECA-2011SE05390

PATIENT
  Age: 776 Month
  Sex: Male

DRUGS (1)
  1. SEROQUEL [Suspect]
     Indication: DELUSION
     Route: 048
     Dates: start: 20100701, end: 20101201

REACTIONS (2)
  - ABNORMAL BEHAVIOUR [None]
  - DRUG DOSE OMISSION [None]
